FAERS Safety Report 13702119 (Version 1)
Quarter: 2017Q2

REPORT INFORMATION
  Report Type: Spontaneous
  Country: US (occurrence: US)
  Receive Date: 20170629
  Receipt Date: 20170629
  Transmission Date: 20170830
  Serious: No
  Sender: FDA-Public Use
  Company Number: US-JNJFOC-20170427190

PATIENT
  Age: 65 Year
  Sex: Female

DRUGS (5)
  1. HEAD AND SHOULDERS [Concomitant]
     Active Substance: PYRITHIONE ZINC
     Indication: DANDRUFF
     Route: 065
  2. NEUTROGENA TGEL THERAPEUTIC [Concomitant]
     Active Substance: COAL TAR
     Indication: DANDRUFF
     Route: 065
  3. SCALPICIN [Concomitant]
     Indication: PRURITUS
     Route: 065
  4. NIZORAL A-D [Suspect]
     Active Substance: KETOCONAZOLE
     Indication: PRURITUS
     Dosage: EVERY DAY
     Route: 061
     Dates: start: 20170404, end: 20170425
  5. NIZORAL A-D [Suspect]
     Active Substance: KETOCONAZOLE
     Indication: DANDRUFF
     Dosage: EVERY DAY
     Route: 061
     Dates: start: 20170404, end: 20170425

REACTIONS (1)
  - Drug ineffective [Not Recovered/Not Resolved]
